FAERS Safety Report 5583791-6 (Version None)
Quarter: 2008Q1

REPORT INFORMATION
  Report Type: 
  Country: None (occurrence: None)
  Receive Date: 20080108
  Receipt Date: 20080107
  Transmission Date: 20080703
  Serious: Yes (Death, Hospitalization)
  Sender: FDA-Public Use
  Company Number: FR-BRISTOL-MYERS SQUIBB COMPANY-13713227

PATIENT
  Age: 69 Year
  Sex: Male

DRUGS (8)
  1. SINEMET CR [Suspect]
     Indication: PARKINSON'S DISEASE
     Route: 048
  2. KETOPROFEN [Suspect]
     Dates: start: 20070210
  3. MODOPAR [Suspect]
     Indication: PARKINSON'S DISEASE
  4. STALEVO 100 [Suspect]
     Indication: PARKINSON'S DISEASE
  5. CORDARONE [Suspect]
     Dates: start: 20070201, end: 20070222
  6. LASILIX [Suspect]
     Indication: CARDIAC FAILURE
     Dates: start: 20061215, end: 20070222
  7. ATACAND [Suspect]
     Indication: CARDIAC FAILURE
     Dates: start: 20061215, end: 20070222
  8. REQUIP [Suspect]

REACTIONS (4)
  - ANAEMIA [None]
  - DEATH [None]
  - LEUKOPENIA [None]
  - THROMBOCYTOPENIA [None]
